FAERS Safety Report 5957055-2 (Version None)
Quarter: 2008Q4

REPORT INFORMATION
  Report Type: 
  Country: None (occurrence: None)
  Receive Date: 20081117
  Receipt Date: 20081117
  Transmission Date: 20090506
  Serious: Yes (Hospitalization, Other)
  Sender: FDA-Public Use
  Company Number: None

PATIENT
  Age: 41 Year
  Sex: Female
  Weight: 79.3795 kg

DRUGS (3)
  1. CYMBALTA [Suspect]
     Indication: ANXIETY
     Dosage: 60MG 1XDAILY PO
     Route: 048
     Dates: start: 20080916, end: 20081102
  2. CYMBALTA [Suspect]
     Indication: DEPRESSION
     Dosage: 60MG 1XDAILY PO
     Route: 048
     Dates: start: 20080916, end: 20081102
  3. CYMBALTA [Suspect]
     Indication: SICK RELATIVE
     Dosage: 60MG 1XDAILY PO
     Route: 048
     Dates: start: 20080916, end: 20081102

REACTIONS (15)
  - ACTIVITIES OF DAILY LIVING IMPAIRED [None]
  - ANGER [None]
  - CARDIAC FLUTTER [None]
  - DIZZINESS [None]
  - DRUG EXPOSURE DURING PREGNANCY [None]
  - DRUG WITHDRAWAL SYNDROME [None]
  - DYSPNOEA [None]
  - DYSSTASIA [None]
  - FEAR [None]
  - FEELING ABNORMAL [None]
  - GAIT DISTURBANCE [None]
  - IMMOBILE [None]
  - IMPAIRED DRIVING ABILITY [None]
  - IMPAIRED WORK ABILITY [None]
  - PREGNANCY [None]
